FAERS Safety Report 5412379-2 (Version None)
Quarter: 2007Q3

REPORT INFORMATION
  Report Type: 
  Country: None (occurrence: None)
  Receive Date: 20070813
  Receipt Date: 20070802
  Transmission Date: 20080115
  Serious: Yes (Death)
  Sender: FDA-Public Use
  Company Number: ZA-AMGEN-UK237302

PATIENT
  Sex: Male

DRUGS (5)
  1. PANITUMUMAB [Suspect]
     Indication: COLORECTAL CANCER
     Route: 042
     Dates: start: 20070716, end: 20070801
  2. ELOXATIN (SANOFI) [Suspect]
     Route: 065
  3. VALIUM [Suspect]
     Route: 065
  4. LEUCOVORIN CALCIUM [Concomitant]
  5. FLUOROURACIL [Concomitant]

REACTIONS (1)
  - CIRCULATORY COLLAPSE [None]
